FAERS Safety Report 22309379 (Version 5)
Quarter: 2023Q4

REPORT INFORMATION
  Report Type: Spontaneous
  Country: US (occurrence: US)
  Receive Date: 20230511
  Receipt Date: 20231002
  Transmission Date: 20240109
  Serious: No
  Sender: FDA-Public Use
  Company Number: US-PFIZER INC-PV202300080995

PATIENT
  Age: 10 Year
  Sex: Female

DRUGS (3)
  1. GENOTROPIN [Suspect]
     Active Substance: SOMATROPIN
     Dosage: 0.8 MG
     Dates: start: 2020
  2. GENOTROPIN [Suspect]
     Active Substance: SOMATROPIN
     Dosage: 1.0MG DAILY DOSE, 7 DAYS PER WEEK
  3. GENOTROPIN [Suspect]
     Active Substance: SOMATROPIN
     Dosage: UNK
     Dates: start: 202208

REACTIONS (6)
  - Laboratory test abnormal [Unknown]
  - Device use issue [Unknown]
  - Drug dose omission by device [Unknown]
  - Product quality issue [Unknown]
  - Device leakage [Unknown]
  - Device mechanical issue [Unknown]
